FAERS Safety Report 4387698-1 (Version None)
Quarter: 2004Q2

REPORT INFORMATION
  Report Type: 
  Country: None (occurrence: None)
  Receive Date: 20040630
  Receipt Date: 20040622
  Transmission Date: 20050107
  Serious: Yes (Life-Threatening, Hospitalization)
  Sender: FDA-Public Use
  Company Number: AE-MERCK-0406USA01952

PATIENT
  Age: 48 Year
  Sex: Female

DRUGS (4)
  1. ASPIRIN [Concomitant]
     Route: 048
  2. INSULIN [Concomitant]
     Route: 065
  3. NITROSTAT [Concomitant]
     Route: 060
  4. ZOCOR [Suspect]
     Indication: BLOOD CHOLESTEROL INCREASED
     Route: 048

REACTIONS (2)
  - CORONARY ARTERY DISEASE [None]
  - ELECTROCARDIOGRAM Q WAVE ABNORMAL [None]
